FAERS Safety Report 13178754 (Version 1)
Quarter: 2017Q1

REPORT INFORMATION
  Report Type: Spontaneous
  Country: US (occurrence: US)
  Receive Date: 20170202
  Receipt Date: 20170202
  Transmission Date: 20170428
  Serious: Yes (Hospitalization)
  Sender: FDA-Public Use
  Company Number: US-BIOGEN-2017BI00349518

PATIENT
  Age: 51 Year
  Sex: Female

DRUGS (1)
  1. TECFIDERA [Suspect]
     Active Substance: DIMETHYL FUMARATE
     Indication: MULTIPLE SCLEROSIS
     Route: 048
     Dates: start: 20140714

REACTIONS (8)
  - Confusional state [Not Recovered/Not Resolved]
  - Acute kidney injury [Unknown]
  - Prescribed underdose [Unknown]
  - Liver function test decreased [Recovered/Resolved]
  - Decubitus ulcer [Recovered/Resolved]
  - Urinary tract infection [Recovered/Resolved]
  - Syncope [Recovered/Resolved]
  - Rectal haemorrhage [Recovered/Resolved]

NARRATIVE: CASE EVENT DATE: 20161210
